FAERS Safety Report 12497065 (Version 2)
Quarter: 2016Q3

REPORT INFORMATION
  Report Type: Report from Study
  Country: US (occurrence: US)
  Receive Date: 20160624
  Receipt Date: 20160715
  Transmission Date: 20161109
  Serious: Yes (Life-Threatening, Hospitalization, Disabling, Other)
  Sender: FDA-Public Use
  Company Number: US-REGENERON PHARMACEUTICALS, INC.-2015-11673

PATIENT

DRUGS (15)
  1. LASER [Suspect]
     Active Substance: DEVICE
     Dosage: OD, PER PROTOCOL
     Route: 031
     Dates: start: 20150520, end: 20150520
  2. LASER [Suspect]
     Active Substance: DEVICE
     Indication: DIABETIC RETINAL OEDEMA
     Dosage: OD, PER PROTOCOL
     Route: 031
     Dates: start: 20140730
  3. METOPROLOL. [Concomitant]
     Active Substance: METOPROLOL
     Indication: HYPERTENSION
     Dosage: 100 MG MILLIGRAM(S), QD
     Route: 048
  4. VITAMIN C [Concomitant]
     Active Substance: ASCORBIC ACID
     Indication: PROPHYLAXIS
     Dosage: 1000 MG MILLIGRAM(S), QD
     Route: 048
  5. LOVASTATIN. [Concomitant]
     Active Substance: LOVASTATIN
     Indication: HYPERCHOLESTEROLAEMIA
     Dosage: 20 MG MILLIGRAM(S), QD
     Route: 048
     Dates: end: 20150603
  6. EYLEA [Suspect]
     Active Substance: AFLIBERCEPT
     Indication: DIABETIC RETINAL OEDEMA
     Dosage: 2 MG MILLIGRAM(S), OD, PER PROTOCOL
     Route: 031
     Dates: start: 20140730
  7. METFORMIN [Concomitant]
     Active Substance: METFORMIN HYDROCHLORIDE
     Indication: DIABETES MELLITUS
     Dosage: 500 MG MILLIGRAM(S), BID
     Route: 048
  8. ASPIRIN. [Concomitant]
     Active Substance: ASPIRIN
     Indication: ATRIOVENTRICULAR BLOCK SECOND DEGREE
     Dosage: 325 MG MILLIGRAM(S), QD
     Route: 048
  9. ATORVASTATIN [Concomitant]
     Active Substance: ATORVASTATIN
     Indication: HYPERCHOLESTEROLAEMIA
     Dosage: 40 MG MILLIGRAM(S), QD
     Route: 048
     Dates: start: 20150530
  10. CLONIDINE. [Concomitant]
     Active Substance: CLONIDINE
     Indication: HYPERTENSION
     Dosage: 0.1 MG MILLIGRAM(S), QD
     Route: 048
     Dates: start: 20150530
  11. POTASSIUM [Concomitant]
     Active Substance: POTASSIUM
     Indication: CARDIAC FAILURE CONGESTIVE
     Dosage: 8 MEQ MILLIEQUIVALENT(S), QD
     Route: 048
     Dates: start: 20140908, end: 20150603
  12. FUROSEMIDE. [Concomitant]
     Active Substance: FUROSEMIDE
     Indication: CARDIAC FAILURE CONGESTIVE
     Dosage: 20 MG MILLIGRAM(S), QD
     Route: 048
     Dates: start: 20140908
  13. EYLEA [Suspect]
     Active Substance: AFLIBERCEPT
     Dosage: 2 MG MILLIGRAM(S), OD, PER PROTOCOL
     Route: 031
     Dates: start: 20150520, end: 20150520
  14. CLONAZEPAM. [Concomitant]
     Active Substance: CLONAZEPAM
     Indication: ANXIETY
     Dosage: 0.5 MG MILLIGRAM(S), TID
     Route: 048
  15. LISINOPRIL. [Concomitant]
     Active Substance: LISINOPRIL
     Indication: HYPERTENSION
     Dosage: 40 MG MILLIGRAM(S), QD
     Route: 048
     Dates: start: 20140903

REACTIONS (4)
  - Acute kidney injury [Not Recovered/Not Resolved]
  - Aphasia [Not Recovered/Not Resolved]
  - Carotid artery disease [Recovering/Resolving]
  - Cerebrovascular accident [Recovered/Resolved with Sequelae]

NARRATIVE: CASE EVENT DATE: 20150530
